FAERS Safety Report 8618016-8 (Version None)
Quarter: 2012Q3

REPORT INFORMATION
  Report Type: 
  Country: None (occurrence: None)
  Receive Date: 20120824
  Receipt Date: 20120131
  Transmission Date: 20120928
  Serious: No
  Sender: FDA-Public Use
  Company Number: US-ASTRAZENECA-2012SE06582

PATIENT
  Sex: Male

DRUGS (3)
  1. STEROIDS [Concomitant]
  2. SYMBICORT [Suspect]
     Dosage: ONE PUFF, DAILY
     Route: 055
  3. SYMBICORT [Suspect]
     Indication: CHEMICAL BURN OF RESPIRATORY TRACT
     Dosage: ONE PUFF, TWICE A DAY
     Route: 055

REACTIONS (5)
  - INCREASED UPPER AIRWAY SECRETION [None]
  - NASOPHARYNGITIS [None]
  - SNEEZING [None]
  - OFF LABEL USE [None]
  - LACRIMATION INCREASED [None]
